FAERS Safety Report 5640959-8 (Version None)
Quarter: 2008Q1

REPORT INFORMATION
  Report Type: 
  Country: None (occurrence: None)
  Receive Date: 20080227
  Receipt Date: 20080215
  Transmission Date: 20080703
  Serious: Yes (Hospitalization)
  Sender: FDA-Public Use
  Company Number: FR-ROCHE-548018

PATIENT
  Age: 14 Year
  Sex: Female

DRUGS (2)
  1. ROACCUTANE [Suspect]
     Indication: ACNE
     Route: 048
     Dates: start: 20071001
  2. ROACCUTANE [Suspect]
     Route: 048
     Dates: end: 20071209

REACTIONS (1)
  - CHOLELITHIASIS [None]
